FAERS Safety Report 10310072 (Version 1)
Quarter: 2014Q3

REPORT INFORMATION
  Report Type: Spontaneous
  Country: GB (occurrence: GB)
  Receive Date: 20140717
  Receipt Date: 20140717
  Transmission Date: 20150326
  Serious: Yes (Other)
  Sender: FDA-Public Use
  Company Number: GB-ACCORD-024800

PATIENT
  Age: 69 Year
  Sex: Female

DRUGS (4)
  1. DEXCEL-PHARMA OMEPRAZOLE [Concomitant]
  2. CLOPIDOGREL [Suspect]
     Active Substance: CLOPIDOGREL BISULFATE
     Indication: CEREBROVASCULAR ACCIDENT PROPHYLAXIS
     Route: 048
     Dates: start: 20140501, end: 20140615
  3. ATORVASTATIN [Concomitant]
     Active Substance: ATORVASTATIN
  4. CANDESARTAN [Concomitant]
     Active Substance: CANDESARTAN

REACTIONS (2)
  - Diplopia [Recovered/Resolved]
  - Binocular eye movement disorder [Recovered/Resolved]

NARRATIVE: CASE EVENT DATE: 20140505
